FAERS Safety Report 7262921-4 (Version None)
Quarter: 2011Q1

REPORT INFORMATION
  Report Type: 
  Country: None (occurrence: None)
  Receive Date: 20110130
  Receipt Date: 20100902
  Transmission Date: 20110831
  Serious: No
  Sender: FDA-Public Use
  Company Number: US-ABBOTT-10P-163-0668104-00

PATIENT
  Age: 36 Year
  Sex: Female

DRUGS (15)
  1. HUMIRA [Suspect]
     Indication: CROHN'S DISEASE
     Dosage: AFTER LOADING DOSES
     Dates: start: 20100821
  2. PERCOCET [Concomitant]
     Indication: PAIN
     Dosage: IN THE MORNING
  3. SOMA [Concomitant]
     Indication: PRODUCT USED FOR UNKNOWN INDICATION
  4. FLEXTOR [Concomitant]
     Indication: BACK DISORDER
  5. COUMADIN [Concomitant]
     Indication: COAGULOPATHY
  6. HYDROCODONE [Concomitant]
     Indication: DRUG ABUSER
  7. RESTORIL [Concomitant]
     Indication: INSOMNIA
  8. HYOMAX [Concomitant]
     Indication: CROHN'S DISEASE
     Dosage: 2 DOSES
  9. MULTI-VITAMIN [Concomitant]
     Indication: PRODUCT USED FOR UNKNOWN INDICATION
  10. KLONOPIN [Concomitant]
     Indication: PRODUCT USED FOR UNKNOWN INDICATION
  11. PROZAC [Concomitant]
     Indication: DEPRESSION
  12. IMODIUM [Concomitant]
     Indication: PRODUCT USED FOR UNKNOWN INDICATION
  13. LIDODERM [Concomitant]
     Indication: BACK DISORDER
     Dosage: PATCHES
  14. EXCEDERINE [Concomitant]
     Indication: MIGRAINE
  15. SEROQUEL [Concomitant]
     Indication: BIPOLAR DISORDER

REACTIONS (3)
  - INJECTION SITE PAIN [None]
  - INJECTION SITE HAEMATOMA [None]
  - INJECTION SITE VESICLES [None]
